FAERS Safety Report 6237349-6 (Version None)
Quarter: 2009Q2

REPORT INFORMATION
  Report Type: 
  Country: None (occurrence: None)
  Receive Date: 20090619
  Receipt Date: 20090609
  Transmission Date: 20091009
  Serious: Yes (Other)
  Sender: FDA-Public Use
  Company Number: PHHY2009JP16068

PATIENT
  Sex: Female

DRUGS (6)
  1. COMTAN [Suspect]
     Indication: PARKINSON'S DISEASE
     Dosage: 100 MG, QID
     Route: 048
     Dates: start: 20080908
  2. COMTAN [Suspect]
     Indication: DRUG EFFECT DECREASED
  3. CARBIDOPA AND LEVODOPA [Concomitant]
     Indication: PARKINSON'S DISEASE
     Dosage: 400 MG, UNK
     Route: 048
  4. CABASER [Concomitant]
     Indication: PARKINSON'S DISEASE
     Dosage: 3.5 MG, UNK
     Route: 048
  5. SELEGILINE HYDROCHLORIDE [Concomitant]
     Indication: PARKINSON'S DISEASE
     Dosage: UNK
     Route: 048
     Dates: start: 20070901
  6. GASTER D [Concomitant]
     Dosage: 20 MG, UNK
     Route: 048
     Dates: start: 20080222

REACTIONS (3)
  - GASTRIC ULCER [None]
  - HELICOBACTER INFECTION [None]
  - IRON DEFICIENCY ANAEMIA [None]
